FAERS Safety Report 23445422 (Version 16)
Quarter: 2025Q1

REPORT INFORMATION
  Report Type: Report from Study
  Country: CA (occurrence: CA)
  Receive Date: 20240126
  Receipt Date: 20250318
  Transmission Date: 20250409
  Serious: Yes (Other)
  Sender: JOHNSON AND JOHNSON
  Company Number: CA-JNJFOC-20231269146

PATIENT
  Age: 16 Year
  Sex: Male
  Weight: 41.28 kg

DRUGS (14)
  1. REMICADE [Suspect]
     Active Substance: INFLIXIMAB
     Indication: Crohn^s disease
     Dosage: BATCH NUMBER; 24B047 EXPIRY DATE;01-FEB-2027, AL-2027
     Route: 041
     Dates: start: 20210224
  2. REMICADE [Suspect]
     Active Substance: INFLIXIMAB
     Indication: Hidradenitis
     Route: 041
  3. REMICADE [Suspect]
     Active Substance: INFLIXIMAB
     Route: 041
  4. REMICADE [Suspect]
     Active Substance: INFLIXIMAB
     Route: 041
     Dates: start: 20210224
  5. REMICADE [Suspect]
     Active Substance: INFLIXIMAB
     Dosage: EXPIRY :01-FEB-2027
     Route: 041
     Dates: start: 20210224
  6. POLYETHYLENE GLYCOL 3350 [Concomitant]
     Active Substance: POLYETHYLENE GLYCOL 3350
  7. SULFASALAZINE [Concomitant]
     Active Substance: SULFASALAZINE
  8. SULFASALAZINE [Concomitant]
     Active Substance: SULFASALAZINE
     Dosage: 1000MG - AM?500 MG- PM
  9. KINERET [Concomitant]
     Active Substance: ANAKINRA
  10. SULFASALAZINE [Concomitant]
     Active Substance: SULFASALAZINE
  11. FOLIC ACID [Concomitant]
     Active Substance: FOLIC ACID
  12. ERTAPENEM [Concomitant]
     Active Substance: ERTAPENEM
  13. IRON [Concomitant]
     Active Substance: IRON
  14. IVIGLOB EX [Concomitant]
     Active Substance: HUMAN IMMUNOGLOBULIN G

REACTIONS (15)
  - Crohn^s disease [Recovering/Resolving]
  - Pyoderma gangrenosum [Not Recovered/Not Resolved]
  - Nasopharyngitis [Recovering/Resolving]
  - Drug level increased [Unknown]
  - Drug ineffective [Unknown]
  - Pyrexia [Recovering/Resolving]
  - Abscess drainage [Not Recovered/Not Resolved]
  - Hidradenitis [Recovering/Resolving]
  - Hypoacusis [Not Recovered/Not Resolved]
  - Mass [Recovered/Resolved]
  - Decreased appetite [Not Recovered/Not Resolved]
  - Central venous catheterisation [Not Recovered/Not Resolved]
  - Cough [Recovering/Resolving]
  - Fungal infection [Not Recovered/Not Resolved]
  - Weight decreased [Not Recovered/Not Resolved]

NARRATIVE: CASE EVENT DATE: 20231208
